FAERS Safety Report 5101989-8 (Version None)
Quarter: 2006Q3

REPORT INFORMATION
  Report Type: 
  Country: None (occurrence: None)
  Receive Date: 20060907
  Receipt Date: 20060623
  Transmission Date: 20061208
  Serious: Yes (Hospitalization, Other)
  Sender: FDA-Public Use
  Company Number: 2006094324

PATIENT
  Age: 52 Year
  Sex: Female
  Weight: 140.6151 kg

DRUGS (1)
  1. BEXTRA [Suspect]
     Indication: ARTHRITIS
     Dosage: 20 MG (20 MG,1 IN 1 D),ORAL
     Route: 048
     Dates: start: 20040101, end: 20041201

REACTIONS (8)
  - DIARRHOEA [None]
  - EXOSTOSIS [None]
  - FALL [None]
  - LACERATION [None]
  - NAIL DISORDER [None]
  - RASH PUSTULAR [None]
  - SKIN ULCER [None]
  - STEVENS-JOHNSON SYNDROME [None]
